FAERS Safety Report 7807934-6 (Version None)
Quarter: 2011Q4

REPORT INFORMATION
  Report Type: 
  Country: None (occurrence: None)
  Receive Date: 20111011
  Receipt Date: 20111011
  Transmission Date: 20120403
  Serious: Yes (Other)
  Sender: FDA-Public Use
  Company Number: None

PATIENT
  Age: 20 Year
  Sex: Female

DRUGS (2)
  1. NUVARING [Suspect]
     Indication: CONTRACEPTION
     Dates: start: 20110315, end: 20110317
  2. PHENERGAN EQ [Concomitant]
     Route: 048

REACTIONS (3)
  - FEELING JITTERY [None]
  - INSOMNIA [None]
  - ANXIETY [None]
